FAERS Safety Report 19425197 (Version 1)
Quarter: 2021Q2

REPORT INFORMATION
  Report Type: Other
  Country: US (occurrence: US)
  Receive Date: 20210617
  Receipt Date: 20210617
  Transmission Date: 20210717
  Serious: No
  Sender: FDA-Public Use
  Company Number: US-ROCHE-2791843

PATIENT
  Age: 34 Year
  Sex: Female
  Weight: 150 kg

DRUGS (9)
  1. CEFEPIME [Concomitant]
     Active Substance: CEFEPIME HYDROCHLORIDE
     Indication: PNEUMONIA
  2. HYDROXYCHLOROQUINE [Concomitant]
     Active Substance: HYDROXYCHLOROQUINE
     Indication: COVID-19
  3. HEPARIN [Concomitant]
     Active Substance: HEPARIN SODIUM
     Dosage: 17.0 U/KG/H
     Route: 042
  4. FENTANYL. [Concomitant]
     Active Substance: FENTANYL
  5. MIDAZOLAM. [Concomitant]
     Active Substance: MIDAZOLAM
     Indication: SEDATION
  6. PROPOFOL. [Concomitant]
     Active Substance: PROPOFOL
  7. VECURONIUM [Concomitant]
     Active Substance: VECURONIUM BROMIDE
  8. ROCURONIUM [Concomitant]
     Active Substance: ROCURONIUM BROMIDE
     Dosage: 7 UG/KG/MIN
  9. TOCILIZUMAB. [Suspect]
     Active Substance: TOCILIZUMAB
     Indication: COVID-19
     Route: 065

REACTIONS (2)
  - No adverse event [Unknown]
  - Off label use [Unknown]
